FAERS Safety Report 6765542-2 (Version None)
Quarter: 2010Q2

REPORT INFORMATION
  Report Type: 
  Country: None (occurrence: None)
  Receive Date: 20100610
  Receipt Date: 20100610
  Transmission Date: 20101027
  Serious: Yes (Other)
  Sender: FDA-Public Use
  Company Number: None

PATIENT
  Age: 23 Year
  Sex: Female
  Weight: 45.3597 kg

DRUGS (2)
  1. LAMOTRIGINE [Suspect]
     Dosage: 150MG 2 QAM PO
     Route: 048
     Dates: start: 20100428
  2. LAMOTRIGINE [Suspect]
     Dosage: 200MG 1 QAM PO
     Route: 048
     Dates: start: 20100325, end: 20100428

REACTIONS (7)
  - AFFECTIVE DISORDER [None]
  - ANXIETY [None]
  - DECREASED APPETITE [None]
  - IRRITABILITY [None]
  - NO THERAPEUTIC RESPONSE [None]
  - PRODUCT SUBSTITUTION ISSUE [None]
  - TEARFULNESS [None]
